FAERS Safety Report 7379678-9 (Version None)
Quarter: 2011Q1

REPORT INFORMATION
  Report Type: 
  Country: None (occurrence: None)
  Receive Date: 20110329
  Receipt Date: 20110325
  Transmission Date: 20110831
  Serious: No
  Sender: FDA-Public Use
  Company Number: US-PFIZER INC-2011067433

PATIENT
  Sex: Female
  Weight: 38.5 kg

DRUGS (7)
  1. XANAX [Concomitant]
     Indication: ANXIETY
     Dosage: 1 MG, 3X/DAY
  2. COMBIVENT [Concomitant]
     Indication: CHRONIC OBSTRUCTIVE PULMONARY DISEASE
     Dosage: UNK
  3. PROTONIX [Concomitant]
     Indication: GASTROOESOPHAGEAL REFLUX DISEASE
     Dosage: UNK
  4. PEPSIN [Concomitant]
     Indication: GASTROOESOPHAGEAL REFLUX DISEASE
     Dosage: UNK
  5. LIPITOR [Suspect]
     Indication: CORONARY ARTERY OCCLUSION
     Dosage: 10 MG, DAILY
     Route: 048
     Dates: start: 20110305
  6. FLOVENT [Concomitant]
     Indication: CHRONIC OBSTRUCTIVE PULMONARY DISEASE
     Dosage: UNK
  7. RAMIPRIL [Suspect]
     Indication: HYPERTENSION
     Dosage: 2.5 MG, DAILY
     Route: 048
     Dates: start: 20110305

REACTIONS (2)
  - FEELING ABNORMAL [None]
  - HEART RATE INCREASED [None]
